FAERS Safety Report 8577268-3 (Version None)
Quarter: 2012Q3

REPORT INFORMATION
  Report Type: 
  Country: None (occurrence: None)
  Receive Date: 20120807
  Receipt Date: 20120509
  Transmission Date: 20120928
  Serious: No
  Sender: FDA-Public Use
  Company Number: US-COVIDIEN/TYCO HEALTHCARE/MALLINCKRODT-T201201694

PATIENT
  Age: 50 Year
  Sex: Male

DRUGS (1)
  1. PENNSAID [Suspect]
     Indication: PAIN
     Dosage: 40 GTTS QID
     Dates: start: 20120203, end: 20120306

REACTIONS (3)
  - DYSURIA [None]
  - GASTROOESOPHAGEAL REFLUX DISEASE [None]
  - DYSPNOEA [None]
